FAERS Safety Report 8350098 (Version 2)
Quarter: 2014Q3

REPORT INFORMATION
  Report Type: Report from Study
  Country: US (occurrence: US)
  Receive Date: 20120124
  Receipt Date: 20140910
  Transmission Date: 20150326
  Serious: Yes (Hospitalization)
  Sender: FDA-Public Use
  Company Number: US-BIOGENIDEC-2012BI002048

PATIENT
  Sex: Female

DRUGS (3)
  1. AVONEX [Suspect]
     Active Substance: INTERFERON BETA-1A
     Indication: MULTIPLE SCLEROSIS
     Route: 030
  2. AVONEX [Suspect]
     Active Substance: INTERFERON BETA-1A
     Indication: MULTIPLE SCLEROSIS
     Route: 030
     Dates: start: 20050818, end: 20051103
  3. AVONEX [Suspect]
     Active Substance: INTERFERON BETA-1A
     Indication: MULTIPLE SCLEROSIS
     Route: 030
     Dates: start: 20070807, end: 20081028

REACTIONS (9)
  - Irritable bowel syndrome [Unknown]
  - Malaise [Unknown]
  - Fear [Unknown]
  - Muscular weakness [Unknown]
  - Temperature intolerance [Unknown]
  - Rectal prolapse [Recovered/Resolved]
  - Pneumonia [Recovered/Resolved]
  - Heat stroke [Unknown]
  - Nausea [Unknown]

NARRATIVE: CASE EVENT DATE: 2011
